FAERS Safety Report 4326374-8 (Version None)
Quarter: 2004Q1

REPORT INFORMATION
  Report Type: 
  Country: None (occurrence: None)
  Receive Date: 20040329
  Receipt Date: 20040329
  Transmission Date: 20041129
  Serious: Yes (Hospitalization)
  Sender: FDA-Public Use
  Company Number: None

PATIENT
  Age: 47 Year
  Sex: Female

DRUGS (2)
  1. CRESTOR [Suspect]
     Indication: HYPERLIPIDAEMIA
     Dosage: 10MG QD PO
     Route: 048
  2. SERZONE [Suspect]
     Indication: DEPRESSION
     Dosage: 200MG QAM AND 400MG Q PM

REACTIONS (3)
  - DEPRESSION [None]
  - HEPATITIS ACUTE [None]
  - RHABDOMYOLYSIS [None]
